FAERS Safety Report 5230222-1 (Version None)
Quarter: 2007Q1

REPORT INFORMATION
  Report Type: 
  Country: None (occurrence: None)
  Receive Date: 20070206
  Receipt Date: 20061006
  Transmission Date: 20070707
  Serious: No
  Sender: FDA-Public Use
  Company Number: US-GLAXOSMITHKLINE-A0622776A

PATIENT
  Age: 33 Year
  Sex: Female

DRUGS (3)
  1. PAXIL CR [Suspect]
     Indication: DEPRESSION
     Dosage: 25MG PER DAY
     Route: 048
     Dates: start: 20030101
  2. COPAXONE [Concomitant]
  3. ORLISTAT [Concomitant]

REACTIONS (4)
  - CRYING [None]
  - DIZZINESS [None]
  - NAUSEA [None]
  - SENSORY DISTURBANCE [None]
